FAERS Safety Report 9844493 (Version 1)
Quarter: 2014Q1

REPORT INFORMATION
  Report Type: Spontaneous
  Country: US (occurrence: None)
  Receive Date: 20140123
  Receipt Date: 20140123
  Transmission Date: 20141002
  Serious: Yes (Death)
  Sender: FDA-Public Use
  Company Number: SYM-2014-14850

PATIENT
  Age: 34 Year
  Sex: Male

DRUGS (6)
  1. BUPROPION HYDROCHLORIDE [Suspect]
     Indication: PRODUCT USED FOR UNKNOWN INDICATION
  2. HYDROCODONE (HYDROCODONE) [Suspect]
  3. OXYCODONE (OXYCODONE) [Suspect]
  4. ALPRAZOLAM (ALPRAZOLAM) [Suspect]
  5. CYCLOBENZAPRINE (CYCLOBENZAPRINE) [Suspect]
  6. DEXTROMETHORPHAN (DEXTROMETHORPHAN) [Suspect]

REACTIONS (1)
  - Drug abuse [None]
